FAERS Safety Report 19603751 (Version 2)
Quarter: 2021Q3

REPORT INFORMATION
  Report Type: Report from Study
  Country: CA (occurrence: CA)
  Receive Date: 20210723
  Receipt Date: 20210820
  Transmission Date: 20211014
  Serious: Yes (Hospitalization, Other)
  Sender: FDA-Public Use
  Company Number: CA-OTSUKA-2021_025329

PATIENT
  Sex: Male

DRUGS (1)
  1. CEDAZURIDINE AND DECITABINE [Suspect]
     Active Substance: CEDAZURIDINE\DECITABINE
     Indication: MYELODYSPLASTIC SYNDROME
     Dosage: 35/100MG (35 MG DECITABINE AND 100 MG CEDAZURIDINE), QD 1?3 DAYS EVERY 28 DAY CYCLE
     Route: 065
     Dates: start: 20210524

REACTIONS (5)
  - Blood count abnormal [Unknown]
  - Malaise [Unknown]
  - Product use issue [Unknown]
  - Transfusion [Unknown]
  - Sepsis [Unknown]
